FAERS Safety Report 16004295 (Version 1)
Quarter: 2019Q1

REPORT INFORMATION
  Report Type: Spontaneous
  Country: US (occurrence: US)
  Receive Date: 20190129
  Receipt Date: 20190129
  Transmission Date: 20190418
  Serious: Yes (Death)
  Sender: FDA-Public Use
  Company Number: None

PATIENT
  Age: 66 Year
  Sex: Female
  Weight: 103.42 kg

DRUGS (7)
  1. KISQALI FEMARA CO-PACK [Suspect]
     Active Substance: LETROZOLE\RIBOCICLIB
     Indication: NEOPLASM MALIGNANT
     Route: 048
     Dates: start: 20181009
  2. LATANOPROST. [Concomitant]
     Active Substance: LATANOPROST
  3. ASPIRIN. [Concomitant]
     Active Substance: ASPIRIN
  4. KEPPRA [Concomitant]
     Active Substance: LEVETIRACETAM
  5. NIFENDIPINE [Concomitant]
  6. TRILEPTAL [Concomitant]
     Active Substance: OXCARBAZEPINE
  7. TOPROL XL [Concomitant]
     Active Substance: METOPROLOL SUCCINATE

REACTIONS (1)
  - Death [None]
